FAERS Safety Report 7923861-8 (Version None)
Quarter: 2011Q4

REPORT INFORMATION
  Report Type: 
  Country: None (occurrence: None)
  Receive Date: 20111117
  Receipt Date: 20110209
  Transmission Date: 20120403
  Serious: No
  Sender: FDA-Public Use
  Company Number: US-AMGEN-USASP2010005936

PATIENT
  Age: 38 Year
  Sex: Female
  Weight: 90.703 kg

DRUGS (1)
  1. ENBREL [Suspect]
     Indication: PSORIATIC ARTHROPATHY
     Dosage: 50 MG, QWK
     Dates: start: 20101101

REACTIONS (5)
  - LYMPHADENOPATHY [None]
  - MUSCULAR WEAKNESS [None]
  - TENDERNESS [None]
  - FATIGUE [None]
  - PAIN IN EXTREMITY [None]
